FAERS Safety Report 10555810 (Version 2)
Quarter: 2014Q4

REPORT INFORMATION
  Report Type: Spontaneous
  Country: JP (occurrence: JP)
  Receive Date: 20141030
  Receipt Date: 20141124
  Transmission Date: 20150529
  Serious: Yes (Other)
  Sender: FDA-Public Use
  Company Number: PHJP2014JP001256

PATIENT
  Age: 25 Year
  Sex: Female

DRUGS (3)
  1. LOPRESSOR [Suspect]
     Active Substance: METOPROLOL TARTRATE
     Indication: CARDIAC FAILURE
     Dosage: 40 MG, UNK
     Route: 065
  2. LOPRESSOR [Suspect]
     Active Substance: METOPROLOL TARTRATE
     Dosage: 60 MG, UNK
     Route: 065
  3. MEXILETINE [Suspect]
     Active Substance: MEXILETINE
     Indication: CARDIAC FAILURE CHRONIC
     Route: 065

REACTIONS (3)
  - Ventricular tachycardia [Unknown]
  - Premature labour [Unknown]
  - Maternal exposure during pregnancy [Unknown]
